FAERS Safety Report 18969056 (Version 1)
Quarter: 2021Q1

REPORT INFORMATION
  Report Type: Spontaneous
  Country: US (occurrence: US)
  Receive Date: 20210304
  Receipt Date: 20210304
  Transmission Date: 20210420
  Serious: Yes (Disabling)
  Sender: FDA-Public Use
  Company Number: None

PATIENT
  Age: 56 Year
  Sex: Male
  Weight: 92.25 kg

DRUGS (4)
  1. MULTIVITAMIN [Concomitant]
     Active Substance: VITAMINS
  2. LEVOFLOXACIN. [Suspect]
     Active Substance: LEVOFLOXACIN
     Indication: EPIDIDYMITIS
     Dosage: ?          QUANTITY:1 TABLET(S);?
     Route: 048
     Dates: start: 20201201, end: 20201205
  3. AMITRIPTYLINE 30 MG [Concomitant]
  4. CIPROFLOXACIN. [Suspect]
     Active Substance: CIPROFLOXACIN

REACTIONS (6)
  - Toxicity to various agents [None]
  - Nerve injury [None]
  - Quality of life decreased [None]
  - Tinnitus [None]
  - Suicidal ideation [None]
  - Paraesthesia [None]

NARRATIVE: CASE EVENT DATE: 20201205
